FAERS Safety Report 16305083 (Version 4)
Quarter: 2021Q1

REPORT INFORMATION
  Report Type: Report from Study
  Country: GB (occurrence: GB)
  Receive Date: 20190513
  Receipt Date: 20210129
  Transmission Date: 20210419
  Serious: Yes (Other)
  Sender: FDA-Public Use
  Company Number: GB-JNJFOC-20190509810

PATIENT
  Age: 41 Year
  Sex: Male

DRUGS (2)
  1. STELARA [Suspect]
     Active Substance: USTEKINUMAB
     Indication: PSORIASIS
     Route: 058
     Dates: start: 20160309
  2. STELARA [Suspect]
     Active Substance: USTEKINUMAB

REACTIONS (5)
  - Malaise [Unknown]
  - Viral infection [Unknown]
  - Hyperhidrosis [Unknown]
  - Lower respiratory tract infection [Unknown]
  - Cold sweat [Unknown]

NARRATIVE: CASE EVENT DATE: 2019
